FAERS Safety Report 6027148-2 (Version None)
Quarter: 2008Q4

REPORT INFORMATION
  Report Type: 
  Country: None (occurrence: None)
  Receive Date: 20081231
  Receipt Date: 20081231
  Transmission Date: 20090506
  Serious: No
  Sender: FDA-Public Use
  Company Number: None

PATIENT
  Age: 120 Year
  Sex: Female
  Weight: 54.4316 kg

DRUGS (1)
  1. ACTONEL [Suspect]
     Indication: OSTEOPENIA
     Dosage: MONTHLY
     Dates: start: 20080605, end: 20080905

REACTIONS (2)
  - ABDOMINAL DISCOMFORT [None]
  - MUSCLE SPASMS [None]
